FAERS Safety Report 8488091-2 (Version None)
Quarter: 2012Q3

REPORT INFORMATION
  Report Type: 
  Country: None (occurrence: None)
  Receive Date: 20120705
  Receipt Date: 20120703
  Transmission Date: 20120928
  Serious: Yes (Other)
  Sender: FDA-Public Use
  Company Number: JP-PFIZER INC-2012146252

PATIENT
  Age: 82 Year
  Sex: Female

DRUGS (9)
  1. CELEBREX [Suspect]
     Dosage: 400 MG, DAILY
     Route: 048
     Dates: start: 20120528
  2. BASSAMIN [Concomitant]
     Dosage: UNK
  3. ENALAPRIL MALEATE [Concomitant]
     Dosage: UNK
  4. LEVOTHYROXINE SODIUM [Concomitant]
     Dosage: UNK
     Route: 048
  5. JANUVIA [Concomitant]
     Dosage: UNK
  6. DIGOXIN [Concomitant]
     Dosage: UNK
     Route: 048
  7. LANSOPRAZOLE [Concomitant]
     Dosage: UNK
  8. WARFARIN [Concomitant]
     Dosage: UNK
     Route: 048
  9. FUROSEMIDE [Concomitant]
     Dosage: UNK
     Route: 048

REACTIONS (2)
  - DEMENTIA [None]
  - RESTLESSNESS [None]
